FAERS Safety Report 20607707 (Version 1)
Quarter: 2022Q1

REPORT INFORMATION
  Report Type: Spontaneous
  Country: US (occurrence: US)
  Receive Date: 20220317
  Receipt Date: 20220317
  Transmission Date: 20220423
  Serious: No
  Sender: FDA-Public Use
  Company Number: US-BAYER-2022A037496

PATIENT
  Age: 50 Year
  Sex: Female

DRUGS (2)
  1. BETASERON [Suspect]
     Active Substance: INTERFERON BETA-1B
     Route: 058
  2. ZINC OXIDE [Concomitant]
     Active Substance: ZINC OXIDE

REACTIONS (8)
  - Injection site discolouration [Recovered/Resolved]
  - Injection site mass [Recovering/Resolving]
  - Injection site pain [Recovering/Resolving]
  - Hypersensitivity [None]
  - Infection [None]
  - Frustration tolerance decreased [None]
  - Injection site swelling [None]
  - Pruritus [None]
